FAERS Safety Report 4318568-2 (Version None)
Quarter: 2004Q1

REPORT INFORMATION
  Report Type: 
  Country: None (occurrence: None)
  Receive Date: 20040316
  Receipt Date: 20040316
  Transmission Date: 20041129
  Serious: Yes (Other)
  Sender: FDA-Public Use
  Company Number: None

PATIENT
  Age: 58 Year
  Sex: Female
  Weight: 69 kg

DRUGS (5)
  1. PROMETHAZINE [Suspect]
     Indication: NAUSEA
     Dosage: 25 MG IVP
     Route: 042
     Dates: start: 20040214
  2. SMZ/TMP [Suspect]
     Indication: PNEUMOCYSTIS CARINII PNEUMONIA
     Dosage: 350 MG IV Q6 HOURS
     Route: 042
     Dates: start: 20040212, end: 20040214
  3. ASPIRIN [Concomitant]
  4. PREDNISONE [Concomitant]
  5. O2 [Concomitant]

REACTIONS (8)
  - AGITATION [None]
  - CHOKING SENSATION [None]
  - CONFUSIONAL STATE [None]
  - DISORIENTATION [None]
  - DRUG INTOLERANCE [None]
  - DYSARTHRIA [None]
  - NAUSEA [None]
  - VOMITING [None]
